FAERS Safety Report 8833539 (Version 1)
Quarter: 2012Q4

REPORT INFORMATION
  Report Type: 
  Country: US (occurrence: US)
  Receive Date: 20121010
  Receipt Date: 20121010
  Transmission Date: 20130627
  Serious: Yes (Other)
  Sender: FDA-Public Use
  Company Number: US-VERTEX PHARMACEUTICAL INC.-2012-022236

PATIENT
  Age: 54 None
  Sex: Male
  Weight: 107 kg

DRUGS (6)
  1. INCIVEK [Suspect]
     Indication: HEPATITIS C
     Dosage: 750 mg, tid
     Route: 048
     Dates: start: 201208, end: 20120928
  2. RIBAVIRIN [Suspect]
     Indication: HEPATITIS C
     Dosage: 600 mg, bid
     Route: 048
     Dates: start: 201208, end: 20120928
  3. PEGASYS [Suspect]
     Indication: HEPATITIS C
     Dosage: 180 UNK, UNK
     Route: 058
     Dates: start: 201208, end: 20120928
  4. METFORMIN [Concomitant]
     Indication: DIABETES MELLITUS
     Dosage: 2000 mg, bid
     Route: 048
     Dates: start: 201209
  5. GABAPENTIN [Concomitant]
     Indication: NEURALGIA
     Dosage: 600 mg, tid
     Route: 048
     Dates: start: 201209
  6. OXYCODONE [Concomitant]
     Indication: PAIN
     Dosage: 5 mg, prn
     Route: 048

REACTIONS (3)
  - Hepatic failure [Unknown]
  - Oedema [Recovered/Resolved]
  - Platelet count decreased [Not Recovered/Not Resolved]
